FAERS Safety Report 11673274 (Version 1)
Quarter: 2015Q4

REPORT INFORMATION
  Report Type: Spontaneous
  Country: CA (occurrence: CA)
  Receive Date: 20151028
  Receipt Date: 20151028
  Transmission Date: 20160304
  Serious: Yes (Other)
  Sender: FDA-Public Use
  Company Number: CA-JNJFOC-20151017452

PATIENT
  Age: 64 Year
  Sex: Male
  Weight: 66 kg

DRUGS (3)
  1. PREZISTA [Suspect]
     Active Substance: DARUNAVIR ETHANOLATE
     Indication: HIV INFECTION
     Route: 065
  2. KIVEXA [Concomitant]
     Active Substance: ABACAVIR SULFATE\LAMIVUDINE
     Route: 065
  3. RITONAVIR. [Concomitant]
     Active Substance: RITONAVIR
     Route: 065

REACTIONS (3)
  - Pruritus [Recovered/Resolved]
  - Mental status changes [Recovered/Resolved]
  - Headache [Recovered/Resolved]
